FAERS Safety Report 24208871 (Version 2)
Quarter: 2024Q3

REPORT INFORMATION
  Report Type: Spontaneous
  Country: GB (occurrence: GB)
  Receive Date: 20240814
  Receipt Date: 20240826
  Transmission Date: 20241016
  Serious: Yes (Other)
  Sender: BAYER
  Company Number: GB-BAYER-2024A115708

PATIENT
  Age: 61 Year
  Sex: Female

DRUGS (1)
  1. NAPROXEN SODIUM [Suspect]
     Active Substance: NAPROXEN\NAPROXEN SODIUM
     Indication: Rheumatoid arthritis

REACTIONS (1)
  - Vasculitis [None]
